FAERS Safety Report 10866345 (Version 1)
Quarter: 2015Q1

REPORT INFORMATION
  Report Type: Spontaneous
  Country: US (occurrence: None)
  Receive Date: 20150224
  Receipt Date: 20150224
  Transmission Date: 20150721
  Serious: Yes (Other)
  Sender: FDA-Public Use
  Company Number: 2015CT000044

PATIENT
  Age: 54 Year
  Sex: Female

DRUGS (19)
  1. KETOCONAZOLE. [Concomitant]
     Active Substance: KETOCONAZOLE
  2. SPIRONOLACTONE. [Concomitant]
     Active Substance: SPIRONOLACTONE
  3. PROPRANOLOL [Concomitant]
     Active Substance: PROPRANOLOL\PROPRANOLOL HYDROCHLORIDE
  4. KCL [Concomitant]
     Active Substance: POTASSIUM CHLORIDE
  5. AMBIEN [Concomitant]
     Active Substance: ZOLPIDEM TARTRATE
  6. CYMBALTA [Concomitant]
     Active Substance: DULOXETINE HYDROCHLORIDE
  7. ZANTAC [Concomitant]
     Active Substance: RANITIDINE HYDROCHLORIDE
  8. METOLAZONE. [Concomitant]
     Active Substance: METOLAZONE
  9. OXYCODONE [Concomitant]
     Active Substance: OXYCODONE
  10. VITAMIN D [Concomitant]
     Active Substance: CHOLECALCIFEROL
  11. LEVOTHYROXINE [Concomitant]
     Active Substance: LEVOTHYROXINE
  12. KORLYM [Suspect]
     Active Substance: MIFEPRISTONE
     Indication: CUSHING^S SYNDROME
     Route: 048
     Dates: start: 20150210
  13. CLONAZEPAM. [Concomitant]
     Active Substance: CLONAZEPAM
  14. BUSPIRONE [Concomitant]
     Active Substance: BUSPIRONE HYDROCHLORIDE
  15. BUMEX [Concomitant]
     Active Substance: BUMETANIDE
  16. HUMULIN R [Concomitant]
     Active Substance: INSULIN HUMAN
  17. ALLOPURINOL. [Concomitant]
     Active Substance: ALLOPURINOL
  18. SUCRALAFATE [Concomitant]
  19. LITHIUM [Concomitant]
     Active Substance: LITHIUM CARBONATE

REACTIONS (2)
  - Hallucination [None]
  - Drug interaction [None]

NARRATIVE: CASE EVENT DATE: 20150211
